FAERS Safety Report 18672529 (Version 1)
Quarter: 2020Q4

REPORT INFORMATION
  Report Type: Report from Study
  Country: JP (occurrence: JP)
  Receive Date: 20201228
  Receipt Date: 20201228
  Transmission Date: 20210114
  Serious: Yes (Hospitalization)
  Sender: FDA-Public Use
  Company Number: JP-JNJFOC-A-CH2017-163618

PATIENT
  Age: 52 Year
  Sex: Male
  Weight: 71.2 kg

DRUGS (36)
  1. UPTRAVI [Suspect]
     Active Substance: SELEXIPAG
     Dosage: 0.6 MG, BID
     Route: 048
     Dates: start: 20170210, end: 20170223
  2. AMLODIPINE [Concomitant]
     Active Substance: AMLODIPINE BESYLATE
     Indication: HYPERTENSION
     Dosage: 2.5 MG, QD
  3. AZUNOL ST [Concomitant]
     Indication: LEUKOPLAKIA ORAL
  4. PITAVASTATIN CALCIUM [Concomitant]
     Active Substance: PITAVASTATIN CALCIUM
  5. FUROSEMIDE. [Concomitant]
     Active Substance: FUROSEMIDE
  6. AZUNOL GARGLE LIQUID [Concomitant]
     Indication: LEUKOPLAKIA ORAL
  7. OPSUMIT [Suspect]
     Active Substance: MACITENTAN
     Indication: PULMONARY ARTERIAL HYPERTENSION
     Dosage: 10 MG, QD
     Route: 048
     Dates: start: 20161025, end: 20190425
  8. TAKECAB [Concomitant]
     Active Substance: VONOPRAZAN FUMARATE
     Indication: GASTROOESOPHAGEAL REFLUX DISEASE
     Dosage: 20 MG, QD
     Dates: start: 20170119
  9. CLARITIN [Concomitant]
     Active Substance: LORATADINE
     Indication: RHINITIS ALLERGIC
     Dosage: 10 MG, QD
     Route: 048
     Dates: end: 20170223
  10. MAGNESIUM OXIDE. [Concomitant]
     Active Substance: MAGNESIUM OXIDE
  11. UPTRAVI [Suspect]
     Active Substance: SELEXIPAG
     Dosage: 1.4 MG, BID
     Route: 048
     Dates: start: 20170324, end: 20170330
  12. ALOSITOL [Concomitant]
     Active Substance: ALLOPURINOL
  13. LIVALO [Concomitant]
     Active Substance: PITAVASTATIN CALCIUM
     Indication: DYSLIPIDAEMIA
     Dosage: 2 MG, QD
  14. SELBEX [Concomitant]
     Active Substance: TEPRENONE
  15. BEZAFIBRATE [Concomitant]
     Active Substance: BEZAFIBRATE
  16. ANOPROLIN [Concomitant]
     Active Substance: ALLOPURINOL
  17. EPINASTINE. [Concomitant]
     Active Substance: EPINASTINE HYDROCHLORIDE
     Indication: RHINITIS ALLERGIC
     Dosage: 20 MG, QD
     Route: 048
     Dates: start: 20170224
  18. SPIRONOLACTONE. [Concomitant]
     Active Substance: SPIRONOLACTONE
  19. UPTRAVI [Suspect]
     Active Substance: SELEXIPAG
     Dosage: 1 MG, BID
     Route: 048
     Dates: start: 20170303, end: 20170309
  20. PARIET [Concomitant]
     Active Substance: RABEPRAZOLE SODIUM
  21. LORATADINE. [Concomitant]
     Active Substance: LORATADINE
  22. UPTRAVI [Suspect]
     Active Substance: SELEXIPAG
     Dosage: 1.0 MG, BID
     Route: 048
     Dates: start: 20190307, end: 20190307
  23. DIART [Concomitant]
     Active Substance: AZOSEMIDE
     Dosage: 30 MG, QD
     Route: 048
     Dates: start: 20181214
  24. BROTIZOLAM DOC [Concomitant]
  25. UPTRAVI [Suspect]
     Active Substance: SELEXIPAG
     Dosage: 0.4 MG, BID
     Route: 048
     Dates: start: 20170203, end: 20170209
  26. UPTRAVI [Suspect]
     Active Substance: SELEXIPAG
     Dosage: 1.4 MG, BID
     Route: 048
     Dates: start: 20181214, end: 20190121
  27. ADEMPAS [Concomitant]
     Active Substance: RIOCIGUAT
     Indication: PULMONARY ARTERIAL HYPERTENSION
     Dosage: 7.5 MG, QD
     Route: 048
  28. DIART [Concomitant]
     Active Substance: AZOSEMIDE
     Indication: OEDEMA
     Dosage: 60 MG, QD
     Route: 048
     Dates: start: 20170428, end: 20181120
  29. UPTRAVI [Suspect]
     Active Substance: SELEXIPAG
     Dosage: 0.8 MG, BID
     Route: 048
     Dates: start: 20170224, end: 20170302
  30. UPTRAVI [Suspect]
     Active Substance: SELEXIPAG
     Dosage: 1.2 MG, BID
     Route: 048
     Dates: start: 20170310, end: 20170323
  31. UPTRAVI [Suspect]
     Active Substance: SELEXIPAG
     Dosage: 1.6 MG, BID
     Route: 048
     Dates: start: 20170331, end: 20181213
  32. CETIRIZINE [Concomitant]
     Active Substance: CETIRIZINE HYDROCHLORIDE
  33. XARELTO [Concomitant]
     Active Substance: RIVAROXABAN
     Dosage: 15 MG, QD
     Dates: start: 20171121, end: 20190220
  34. UPTRAVI [Suspect]
     Active Substance: SELEXIPAG
     Indication: PULMONARY ARTERIAL HYPERTENSION
     Dosage: 0.2 MG, BID
     Route: 048
     Dates: start: 20170119, end: 20170202
  35. UPTRAVI [Suspect]
     Active Substance: SELEXIPAG
     Dosage: 1.2 MG, BID
     Route: 048
     Dates: start: 20190122, end: 20190306
  36. AMOXICILLIN HYDRATE [Concomitant]
     Active Substance: AMOXICILLIN
     Dosage: 1000 MG, QD
     Route: 048
     Dates: start: 20170407, end: 20170411

REACTIONS (13)
  - Atrial septal defect [Recovered/Resolved]
  - Nasopharyngitis [Recovered/Resolved]
  - Alanine aminotransferase increased [Recovering/Resolving]
  - Atrial septal defect repair [Unknown]
  - Hepatic function abnormal [Recovering/Resolving]
  - Oedema peripheral [Recovering/Resolving]
  - Face oedema [Recovering/Resolving]
  - Localised oedema [Recovering/Resolving]
  - Sleep apnoea syndrome [Unknown]
  - Blood alkaline phosphatase abnormal [Recovering/Resolving]
  - Anaemia [Recovered/Resolved]
  - Tongue ulceration [Recovered/Resolved]
  - Glossectomy [Unknown]

NARRATIVE: CASE EVENT DATE: 20161110
